FAERS Safety Report 5758223-5 (Version None)
Quarter: 2008Q2

REPORT INFORMATION
  Report Type: 
  Country: None (occurrence: None)
  Receive Date: 20080604
  Receipt Date: 20080529
  Transmission Date: 20081010
  Serious: Yes (Life-Threatening)
  Sender: FDA-Public Use
  Company Number: US-PURDUE-USA_2008_0033119

PATIENT
  Age: 42 None
  Sex: Male

DRUGS (1)
  1. OXYCONTIN [Suspect]
     Indication: DRUG USE FOR UNKNOWN INDICATION
     Dosage: UNK UNIT, UNK
     Route: 065

REACTIONS (2)
  - BRAIN DEATH [None]
  - RESPIRATORY FAILURE [None]
